FAERS Safety Report 13750680 (Version 1)
Quarter: 2017Q3

REPORT INFORMATION
  Report Type: Report from Study
  Country: None (occurrence: KR)
  Receive Date: 20170713
  Receipt Date: 20170713
  Transmission Date: 20171127
  Serious: Yes (Hospitalization)
  Sender: FDA-Public Use
  Company Number: KR-ABBVIE-17K-090-2037951-00

PATIENT
  Sex: Male

DRUGS (1)
  1. HUMIRA [Suspect]
     Active Substance: ADALIMUMAB
     Indication: PRODUCT USED FOR UNKNOWN INDICATION
     Route: 058
     Dates: start: 201704, end: 201706

REACTIONS (4)
  - Intestinal resection [Unknown]
  - Colostomy [Unknown]
  - Condition aggravated [Unknown]
  - Post procedural complication [Unknown]

NARRATIVE: CASE EVENT DATE: 201707
